FAERS Safety Report 9044091 (Version 2)
Quarter: 2013Q1

REPORT INFORMATION
  Report Type: Spontaneous
  Country: AT (occurrence: AU)
  Receive Date: 20130130
  Receipt Date: 20130215
  Transmission Date: 20140127
  Serious: Yes (Other)
  Sender: FDA-Public Use
  Company Number: PHHY2013AU006460

PATIENT
  Sex: Male

DRUGS (1)
  1. TASIGNA [Suspect]
     Route: 048

REACTIONS (7)
  - Mucous stools [Unknown]
  - Haematochezia [Unknown]
  - Breath odour [Unknown]
  - Abdominal pain upper [Unknown]
  - Headache [Unknown]
  - Asthenia [Unknown]
  - Drug ineffective [Unknown]
